FAERS Safety Report 7005656-5 (Version None)
Quarter: 2010Q3

REPORT INFORMATION
  Report Type: 
  Country: None (occurrence: None)
  Receive Date: 20100921
  Receipt Date: 20100913
  Transmission Date: 20110219
  Serious: Yes (Other)
  Sender: FDA-Public Use
  Company Number: B0671205A

PATIENT
  Sex: Male

DRUGS (3)
  1. CLAVAMOX [Suspect]
     Indication: IMPETIGO
     Dosage: 3.03G PER DAY
     Route: 048
     Dates: start: 20100810, end: 20100816
  2. PROPADERM [Concomitant]
     Route: 061
     Dates: start: 20100810, end: 20100816
  3. GENTAMICIN [Concomitant]
     Route: 061
     Dates: start: 20100810, end: 20100816

REACTIONS (1)
  - DRUG ERUPTION [None]
